FAERS Safety Report 9376290 (Version 1)
Quarter: 2013Q3

REPORT INFORMATION
  Report Type: Spontaneous
  Country: JP (occurrence: JP)
  Receive Date: 20130701
  Receipt Date: 20130701
  Transmission Date: 20140515
  Serious: Yes (Other)
  Sender: FDA-Public Use
  Company Number: PHHY2013JP065680

PATIENT
  Age: 69 Year
  Sex: Female

DRUGS (4)
  1. VINCRISTINE [Suspect]
  2. PREDNISOLONE [Suspect]
  3. RITUXIMAB [Suspect]
  4. CYCLOPHOSPHAMIDE [Suspect]

REACTIONS (3)
  - Nervous system disorder [Unknown]
  - Abasia [Unknown]
  - Drug ineffective [Unknown]
